FAERS Safety Report 13834877 (Version 1)
Quarter: 2017Q3

REPORT INFORMATION
  Report Type: Spontaneous
  Country: US (occurrence: US)
  Receive Date: 20170804
  Receipt Date: 20170804
  Transmission Date: 20171127
  Serious: Yes (Death)
  Sender: FDA-Public Use
  Company Number: US-ROCHE-1973768

PATIENT
  Age: 92 Year
  Sex: Female

DRUGS (2)
  1. ACTIVASE [Suspect]
     Active Substance: ALTEPLASE
     Dosage: ONE TIME DOSE ;ONGOING: NO
     Route: 042
     Dates: start: 20170801, end: 20170801
  2. ACTIVASE [Suspect]
     Active Substance: ALTEPLASE
     Indication: CEREBROVASCULAR ACCIDENT
     Dosage: ONE TIME DOSE ;ONGOING: NO
     Route: 040
     Dates: start: 20170801, end: 20170801

REACTIONS (1)
  - Cerebral haemorrhage [Fatal]

NARRATIVE: CASE EVENT DATE: 20170802
